FAERS Safety Report 19579853 (Version 1)
Quarter: 2021Q3

REPORT INFORMATION
  Report Type: Spontaneous
  Country: IN (occurrence: IN)
  Receive Date: 20210719
  Receipt Date: 20210719
  Transmission Date: 20211014
  Serious: Yes (Other)
  Sender: FDA-Public Use
  Company Number: IN-AMGEN-INDSP2021107335

PATIENT

DRUGS (1)
  1. XGEVA [Suspect]
     Active Substance: DENOSUMAB
     Indication: BONE GIANT CELL TUMOUR
     Dosage: 120 MICROGRAM, Q4WK
     Route: 058

REACTIONS (4)
  - Postoperative wound complication [Unknown]
  - Haemorrhage [Unknown]
  - Therapy partial responder [Unknown]
  - Bone giant cell tumour [Unknown]
